FAERS Safety Report 17708060 (Version 1)
Quarter: 2020Q2

REPORT INFORMATION
  Report Type: Report from Study
  Country: GB (occurrence: GB)
  Receive Date: 20200425
  Receipt Date: 20200425
  Transmission Date: 20200714
  Serious: Yes (Death, Hospitalization, Other)
  Sender: FDA-Public Use
  Company Number: GB-ACCORD-179382

PATIENT
  Age: 66 Year
  Sex: Female

DRUGS (23)
  1. VINORELBINE [Suspect]
     Active Substance: VINORELBINE TARTRATE
     Indication: BREAST CANCER METASTATIC
     Route: 048
     Dates: start: 20151204, end: 20151223
  2. ATORVASTATIN [Concomitant]
     Active Substance: ATORVASTATIN
     Route: 048
     Dates: end: 20160908
  3. VINORELBINE [Suspect]
     Active Substance: VINORELBINE TARTRATE
     Indication: BREAST CANCER METASTATIC
     Route: 048
     Dates: start: 20151230, end: 20160115
  4. TRASTUZUMAB. [Suspect]
     Active Substance: TRASTUZUMAB
     Indication: BREAST CANCER METASTATIC
     Route: 058
     Dates: start: 20151005, end: 20160908
  5. ACICLOVIR [Concomitant]
     Active Substance: ACYCLOVIR
     Route: 061
     Dates: start: 20020108, end: 20020113
  6. TRAMADOL. [Concomitant]
     Active Substance: TRAMADOL
     Indication: PAIN
     Dosage: AS NEEDED.
     Route: 048
     Dates: end: 20160908
  7. OMEPRAZOLE. [Concomitant]
     Active Substance: OMEPRAZOLE
     Indication: PROPHYLAXIS
     Route: 048
     Dates: end: 20160908
  8. ADCAL D3 [Concomitant]
     Active Substance: CALCIUM CARBONATE\CHOLECALCIFEROL
     Route: 048
     Dates: end: 20160908
  9. ACETYLSALICYLIC ACID [Concomitant]
     Active Substance: ASPIRIN
     Route: 048
     Dates: end: 20160908
  10. LAXIDO [Concomitant]
     Active Substance: POLYETHYLENE GLYCOL 3350\POTASSIUM CHLORIDE\SODIUM BICARBONATE\SODIUM CHLORIDE
     Indication: CONSTIPATION
     Route: 048
     Dates: end: 20160908
  11. DOCUSATE SODIUM. [Concomitant]
     Active Substance: DOCUSATE SODIUM
     Route: 048
     Dates: end: 20160908
  12. VINORELBINE [Suspect]
     Active Substance: VINORELBINE TARTRATE
     Indication: BREAST CANCER METASTATIC
     Route: 048
     Dates: start: 20151113, end: 20151120
  13. TAMOXIFEN [Suspect]
     Active Substance: TAMOXIFEN
     Indication: BREAST CANCER METASTATIC
     Route: 048
     Dates: start: 20160708, end: 20160908
  14. DENOSUMAB [Concomitant]
     Active Substance: DENOSUMAB
     Route: 058
     Dates: end: 20160824
  15. MACROGOL 3350/POTASSIUM CHLORIDE/SODIUM CHLORIDE/SODIUM BICARBONATE [Concomitant]
     Indication: CONSTIPATION
     Route: 048
     Dates: start: 20160809, end: 20160809
  16. VINORELBINE [Suspect]
     Active Substance: VINORELBINE TARTRATE
     Indication: BREAST CANCER METASTATIC
     Route: 048
     Dates: start: 20160122, end: 20160318
  17. CAPECITABINE. [Suspect]
     Active Substance: CAPECITABINE
     Indication: BREAST CANCER METASTATIC
     Route: 048
     Dates: start: 20160331
  18. PYRIDOXINE [Concomitant]
     Active Substance: PYRIDOXINE
     Dosage: TO MITIGATE POTENTIAL NEUROLOGICAL SIDE EFFECTS OF CHEMOTHERAPY
     Route: 048
     Dates: start: 20160525, end: 20160908
  19. GABAPENTIN. [Concomitant]
     Active Substance: GABAPENTIN
     Route: 048
     Dates: end: 20160908
  20. OXYCODONE [Concomitant]
     Active Substance: OXYCODONE
     Dosage: AS NEEDED.
     Route: 048
     Dates: end: 20160908
  21. CAPECITABINE. [Suspect]
     Active Substance: CAPECITABINE
     Indication: BREAST CANCER METASTATIC
     Route: 048
     Dates: start: 20160603, end: 20160623
  22. VINORELBINE [Suspect]
     Active Substance: VINORELBINE TARTRATE
     Indication: BREAST CANCER METASTATIC
     Route: 048
     Dates: start: 20151002, end: 20151030
  23. CAPECITABINE. [Suspect]
     Active Substance: CAPECITABINE
     Indication: BREAST CANCER METASTATIC
     Route: 048
     Dates: start: 20160401, end: 20160603

REACTIONS (15)
  - Dyspnoea exertional [Recovered/Resolved]
  - Constipation [Recovered/Resolved]
  - Hypoglycaemia [Recovered/Resolved]
  - Death [Fatal]
  - Lymphadenopathy [Recovered/Resolved]
  - Lymphoedema [Recovered/Resolved]
  - Oral pain [Recovered/Resolved]
  - Lower respiratory tract infection [Recovered/Resolved]
  - Cough [Recovered/Resolved]
  - Sepsis [Recovered/Resolved]
  - Hepatic pain [Recovered/Resolved]
  - Fatigue [Unknown]
  - Palmar-plantar erythrodysaesthesia syndrome [Unknown]
  - Dizziness [Not Recovered/Not Resolved]
  - Musculoskeletal pain [Recovered/Resolved]

NARRATIVE: CASE EVENT DATE: 20160211
